FAERS Safety Report 6105738-6 (Version None)
Quarter: 2009Q1

REPORT INFORMATION
  Report Type: 
  Country: None (occurrence: None)
  Receive Date: 20090306
  Receipt Date: 20090302
  Transmission Date: 20090719
  Serious: Yes (Other)
  Sender: FDA-Public Use
  Company Number: US-JNJFOC-20090102970

PATIENT
  Age: 95 Year
  Sex: Female
  Weight: 49.9 kg

DRUGS (9)
  1. EXTRA STRENGTH TYLENOL [Suspect]
     Route: 048
  2. EXTRA STRENGTH TYLENOL [Suspect]
     Indication: FIBROMYALGIA
     Route: 048
  3. SYNTHROID [Concomitant]
     Indication: THYROID DISORDER
  4. DIOVAN [Concomitant]
     Indication: HYPERTENSION
  5. NORVASC [Concomitant]
     Indication: HYPERTENSION
  6. FERROUS GLUCONATE [Concomitant]
     Indication: ANAEMIA
  7. CLONAZEPAM [Concomitant]
     Indication: MUSCLE RELAXANT THERAPY
  8. TRAMADOL HCL [Concomitant]
     Indication: MUSCLE RELAXANT THERAPY
  9. AGGRENOX [Concomitant]
     Indication: CEREBROVASCULAR ACCIDENT PROPHYLAXIS

REACTIONS (1)
  - PRODUCT TAMPERING [None]
